FAERS Safety Report 6609478-6 (Version None)
Quarter: 2010Q1

REPORT INFORMATION
  Report Type: 
  Country: None (occurrence: None)
  Receive Date: 20100302
  Receipt Date: 20100218
  Transmission Date: 20100710
  Serious: Yes (Congenital Anomaly)
  Sender: FDA-Public Use
  Company Number: US-JNJFOC-20100210387

PATIENT
  Sex: Female

DRUGS (2)
  1. TYLENOL (CAPLET) [Suspect]
     Route: 015
  2. TYLENOL (CAPLET) [Suspect]
     Indication: DRUG EXPOSURE DURING PREGNANCY
     Route: 015

REACTIONS (3)
  - DRUG EXPOSURE DURING PREGNANCY [None]
  - HEART DISEASE CONGENITAL [None]
  - PRODUCT QUALITY ISSUE [None]
